FAERS Safety Report 7230708-4 (Version None)
Quarter: 2011Q1

REPORT INFORMATION
  Report Type: 
  Country: None (occurrence: None)
  Receive Date: 20110118
  Receipt Date: 20110107
  Transmission Date: 20110831
  Serious: Yes (Other)
  Sender: FDA-Public Use
  Company Number: JP-JNJFOC-20110102617

PATIENT
  Sex: Female
  Weight: 97 kg

DRUGS (26)
  1. PYDOXAL [Concomitant]
     Indication: PALMAR-PLANTAR ERYTHRODYSAESTHESIA SYNDROME
     Route: 048
  2. UREPEARL [Concomitant]
     Indication: PALMAR-PLANTAR ERYTHRODYSAESTHESIA SYNDROME
     Route: 061
  3. DECADRON [Concomitant]
     Indication: PROPHYLAXIS OF NAUSEA AND VOMITING
     Route: 048
  4. DOXORUBICIN HCL [Suspect]
     Dosage: CYCLE 2
     Route: 042
  5. ZANTAC [Suspect]
     Indication: PROPHYLAXIS
     Route: 048
  6. DECADRON [Concomitant]
     Route: 048
  7. MAGLAX [Concomitant]
     Route: 048
  8. DECADRON [Concomitant]
     Indication: PRODUCT USED FOR UNKNOWN INDICATION
     Route: 042
  9. LAXOBERON [Concomitant]
     Indication: CONSTIPATION
     Route: 048
  10. DOXORUBICIN HCL [Suspect]
     Dosage: CYCLE 8
     Route: 042
  11. DOXORUBICIN HCL [Suspect]
     Dosage: CYCLE 9
     Route: 042
  12. DOXORUBICIN HCL [Suspect]
     Dosage: CYCLE 4
     Route: 042
  13. DOXORUBICIN HCL [Suspect]
     Dosage: CYCLE 3
     Route: 042
  14. PARAPLATIN [Suspect]
     Indication: OVARIAN CANCER RECURRENT
     Route: 042
  15. PARAPLATIN [Suspect]
     Route: 042
  16. SOLANAX [Concomitant]
     Indication: DECREASED APPETITE
     Route: 048
  17. DECADRON [Concomitant]
     Route: 042
  18. DOXORUBICIN HCL [Suspect]
     Dosage: CYCLE 1
     Route: 042
  19. DOXORUBICIN HCL [Suspect]
     Indication: OVARIAN CANCER RECURRENT
     Dosage: CYCLE 5
     Route: 042
  20. ZANTAC [Suspect]
     Route: 048
  21. PRIMPERAN TAB [Concomitant]
     Indication: PROPHYLAXIS OF NAUSEA AND VOMITING
     Route: 048
  22. ZANTAC [Concomitant]
     Route: 042
  23. DOXORUBICIN HCL [Suspect]
     Dosage: CYCLE 6
     Route: 042
  24. ZOFRAN [Concomitant]
     Indication: PRODUCT USED FOR UNKNOWN INDICATION
     Route: 042
  25. DOXORUBICIN HCL [Suspect]
     Dosage: CYCLE 7
     Route: 042
  26. MAGLAX [Concomitant]
     Indication: CONSTIPATION
     Route: 048

REACTIONS (1)
  - NEUROPATHY PERIPHERAL [None]
